FAERS Safety Report 17105522 (Version 3)
Quarter: 2020Q1

REPORT INFORMATION
  Report Type: Spontaneous
  Country: CA (occurrence: CA)
  Receive Date: 20191203
  Receipt Date: 20200117
  Transmission Date: 20200409
  Serious: Yes (Hospitalization)
  Sender: FDA-Public Use
  Company Number: CA-TEVA-2019-CA-1135895

PATIENT
  Age: 52 Year
  Sex: Male

DRUGS (4)
  1. ACT-LEVOFLOXACIN [Suspect]
     Active Substance: LEVOFLOXACIN
     Indication: RENAL DISORDER
     Dates: start: 20190714, end: 201907
  2. ACT-LEVOFLOXACIN [Suspect]
     Active Substance: LEVOFLOXACIN
     Indication: EPIDIDYMITIS
  3. NAPROXEN. [Concomitant]
     Active Substance: NAPROXEN
     Dosage: 1000 MILLIGRAM DAILY;
     Route: 048
  4. NEXIUM [Concomitant]
     Active Substance: ESOMEPRAZOLE MAGNESIUM
     Route: 048

REACTIONS (9)
  - Paraesthesia [Unknown]
  - Pain [Unknown]
  - Injury [Unknown]
  - Eye disorder [Unknown]
  - Pain in extremity [Unknown]
  - Hypoaesthesia [Unknown]
  - Dyspnoea [Unknown]
  - Rash macular [Unknown]
  - Tendon pain [Unknown]

NARRATIVE: CASE EVENT DATE: 201907
